FAERS Safety Report 22140127 (Version 1)
Quarter: 2023Q1

REPORT INFORMATION
  Report Type: Spontaneous
  Country: US (occurrence: None)
  Receive Date: 20230326
  Receipt Date: 20230326
  Transmission Date: 20230418
  Serious: Yes (Other)
  Sender: FDA-Public Use
  Company Number: None

PATIENT
  Age: 35 Year
  Sex: Female
  Weight: 60.75 kg

DRUGS (1)
  1. MOLNUPIRAVIR [Suspect]
     Active Substance: MOLNUPIRAVIR
     Indication: COVID-19

REACTIONS (5)
  - Nausea [None]
  - Body temperature decreased [None]
  - Restless legs syndrome [None]
  - Delusional perception [None]
  - Anxiety [None]

NARRATIVE: CASE EVENT DATE: 20221215
